FAERS Safety Report 6573520-1 (Version None)
Quarter: 2010Q1

REPORT INFORMATION
  Report Type: 
  Country: None (occurrence: None)
  Receive Date: 20100208
  Receipt Date: 20100201
  Transmission Date: 20100710
  Serious: Yes (Hospitalization)
  Sender: FDA-Public Use
  Company Number: IT-ABBOTT-10P-083-0619921-00

PATIENT
  Sex: Female

DRUGS (6)
  1. VECLAM [Suspect]
     Indication: COUGH
     Dosage: 1000 MG/DAY, ONCE
     Route: 048
     Dates: start: 20100113, end: 20100113
  2. ASPIRIN [Concomitant]
     Indication: DRUG USE FOR UNKNOWN INDICATION
  3. ISOPTIN [Concomitant]
     Indication: DRUG USE FOR UNKNOWN INDICATION
  4. COVERSYL [Concomitant]
     Indication: DRUG USE FOR UNKNOWN INDICATION
  5. HALCION [Concomitant]
     Indication: DRUG USE FOR UNKNOWN INDICATION
  6. FLUIFORT [Concomitant]
     Indication: DRUG USE FOR UNKNOWN INDICATION
     Dates: start: 20100113, end: 20100113

REACTIONS (2)
  - PRURITUS GENERALISED [None]
  - STRIDOR [None]
